FAERS Safety Report 5113091-X (Version None)
Quarter: 2006Q3

REPORT INFORMATION
  Report Type: 
  Country: None (occurrence: None)
  Receive Date: 20060731
  Receipt Date: 20060406
  Transmission Date: 20061208
  Serious: No
  Sender: FDA-Public Use
  Company Number: 2006PV011629

PATIENT
  Age: 52 Year
  Sex: Female
  Weight: 82.5547 kg

DRUGS (4)
  1. BYETTA [Suspect]
     Indication: DIABETES MELLITUS NON-INSULIN-DEPENDENT
     Dosage: 5 MCG;BID;SC
     Route: 058
     Dates: start: 20060330
  2. METFORMIN HCL [Concomitant]
  3. ACTOS /USA/ [Concomitant]
  4. GLYBURIDE [Concomitant]

REACTIONS (1)
  - BLOOD GLUCOSE FLUCTUATION [None]
